FAERS Safety Report 7054703-3 (Version None)
Quarter: 2010Q4

REPORT INFORMATION
  Report Type: 
  Country: None (occurrence: None)
  Receive Date: 20101015
  Receipt Date: 20101001
  Transmission Date: 20110411
  Serious: No
  Sender: FDA-Public Use
  Company Number: 018862

PATIENT
  Sex: Male

DRUGS (2)
  1. KEPPRA [Suspect]
  2. KEPPRA [Suspect]
     Dosage: (2 TABLETS)

REACTIONS (5)
  - ABNORMAL DREAMS [None]
  - DIARRHOEA [None]
  - INSOMNIA [None]
  - RESTLESSNESS [None]
  - WITHDRAWAL SYNDROME [None]
